FAERS Safety Report 4485568-1 (Version None)
Quarter: 2004Q4

REPORT INFORMATION
  Report Type: 
  Country: None (occurrence: None)
  Receive Date: 20041021
  Receipt Date: 20041008
  Transmission Date: 20050328
  Serious: Yes (Hospitalization)
  Sender: FDA-Public Use
  Company Number: 2004067837

PATIENT
  Age: 30 Year
  Sex: Female
  Weight: 70.3075 kg

DRUGS (5)
  1. RELPAX [Suspect]
     Indication: HEADACHE
     Dosage: (40 MG, 1 IN 1 D), ORAL
     Route: 048
     Dates: start: 20040916, end: 20040916
  2. IBUPROFEN [Concomitant]
  3. ACETAMINOPHEN [Concomitant]
  4. CONTRACEPTIVE (CONTRACEPTIVE) [Concomitant]
  5. RIZATRIPTAN BENZOATE (RIZATRIPTAN BENZOATE) [Concomitant]

REACTIONS (5)
  - CHEST PAIN [None]
  - CONDUCTION DISORDER [None]
  - MUSCLE TIGHTNESS [None]
  - NECK PAIN [None]
  - TROPONIN I INCREASED [None]
